FAERS Safety Report 12549365 (Version 1)
Quarter: 2016Q3

REPORT INFORMATION
  Report Type: Spontaneous
  Country: BR (occurrence: BR)
  Receive Date: 20160712
  Receipt Date: 20160712
  Transmission Date: 20161109
  Serious: Yes (Other)
  Sender: FDA-Public Use
  Company Number: BR-BAYER-2016-135298

PATIENT
  Age: 40 Year
  Sex: Female

DRUGS (2)
  1. MAGNEVISTAN [Suspect]
     Active Substance: GADOPENTETATE DIMEGLUMINE
     Indication: NUCLEAR MAGNETIC RESONANCE IMAGING ABDOMINAL
     Dosage: 9 ML, ONCE
     Route: 042
     Dates: start: 20160620, end: 20160620
  2. MAGNEVISTAN [Suspect]
     Active Substance: GADOPENTETATE DIMEGLUMINE
     Indication: ABDOMINAL PAIN

REACTIONS (2)
  - Infusion site thrombosis [Recovered/Resolved]
  - Puncture site pain [Recovered/Resolved]

NARRATIVE: CASE EVENT DATE: 201606
